FAERS Safety Report 12293588 (Version 1)
Quarter: 2016Q2

REPORT INFORMATION
  Report Type: Spontaneous
  Country: US (occurrence: US)
  Receive Date: 20160421
  Receipt Date: 20160421
  Transmission Date: 20160815
  Serious: Yes (Other)
  Sender: FDA-Public Use
  Company Number: US-FRI-1000084011

PATIENT
  Age: 62 Year
  Sex: Female

DRUGS (4)
  1. VIIBRYD [Suspect]
     Active Substance: VILAZODONE HYDROCHLORIDE
     Dosage: 20 MG
     Route: 048
  2. VIIBRYD [Suspect]
     Active Substance: VILAZODONE HYDROCHLORIDE
     Dosage: 40 MG
     Route: 048
  3. VIIBRYD [Suspect]
     Active Substance: VILAZODONE HYDROCHLORIDE
     Indication: MAJOR DEPRESSION
     Dosage: 10 MG
     Route: 048
     Dates: start: 201510
  4. VIIBRYD [Suspect]
     Active Substance: VILAZODONE HYDROCHLORIDE
     Dosage: 20 MG
     Route: 048

REACTIONS (6)
  - Dry eye [Not Recovered/Not Resolved]
  - Episcleritis [Recovered/Resolved]
  - Off label use [Not Recovered/Not Resolved]
  - Eye pruritus [Not Recovered/Not Resolved]
  - Contact lens intolerance [Not Recovered/Not Resolved]
  - Conjunctival haemorrhage [Recovered/Resolved]

NARRATIVE: CASE EVENT DATE: 201510
